FAERS Safety Report 8421068-1 (Version None)
Quarter: 2012Q2

REPORT INFORMATION
  Report Type: 
  Country: None (occurrence: None)
  Receive Date: 20120608
  Receipt Date: 20120601
  Transmission Date: 20120825
  Serious: Yes (Other)
  Sender: FDA-Public Use
  Company Number: CA-US-EMD SERONO, INC.-7088846

PATIENT
  Sex: Female
  Weight: 59 kg

DRUGS (1)
  1. REBIF [Suspect]
     Indication: RELAPSING-REMITTING MULTIPLE SCLEROSIS
     Route: 058
     Dates: start: 20000601

REACTIONS (7)
  - HIP FRACTURE [None]
  - OSTEOPOROSIS [None]
  - WEIGHT DECREASED [None]
  - ASTHENIA [None]
  - FALL [None]
  - RIB FRACTURE [None]
  - INJECTION SITE PAIN [None]
